FAERS Safety Report 16025419 (Version 3)
Quarter: 2019Q2

REPORT INFORMATION
  Report Type: Report from Study
  Country: None (occurrence: CA)
  Receive Date: 20190301
  Receipt Date: 20190526
  Transmission Date: 20190711
  Serious: Yes (Other)
  Sender: FDA-Public Use
  Company Number: CA-ABBVIE-19K-028-2681731-00

PATIENT
  Age: 47 Year
  Sex: Male

DRUGS (3)
  1. HUMIRA [Suspect]
     Active Substance: ADALIMUMAB
     Indication: CROHN^S DISEASE
     Route: 058
     Dates: start: 20181012
  2. HUMIRA [Suspect]
     Active Substance: ADALIMUMAB
     Route: 058
     Dates: start: 201902
  3. CORTISONE [Suspect]
     Active Substance: CORTISONE\HYDROCORTISONE
     Indication: PRODUCT USED FOR UNKNOWN INDICATION
     Route: 065

REACTIONS (8)
  - Drug dependence [Not Recovered/Not Resolved]
  - Faecal calprotectin abnormal [Not Recovered/Not Resolved]
  - Ecchymosis [Unknown]
  - Malaise [Unknown]
  - Drug level changed [Not Recovered/Not Resolved]
  - C-reactive protein abnormal [Not Recovered/Not Resolved]
  - Crohn^s disease [Not Recovered/Not Resolved]
  - Ecchymosis [Recovered/Resolved]

NARRATIVE: CASE EVENT DATE: 201905
